FAERS Safety Report 6221793-7 (Version None)
Quarter: 2009Q2

REPORT INFORMATION
  Report Type: 
  Country: None (occurrence: None)
  Receive Date: 20090608
  Receipt Date: 20090601
  Transmission Date: 20091009
  Serious: Yes (Other)
  Sender: FDA-Public Use
  Company Number: 2009SP011980

PATIENT
  Sex: Female

DRUGS (1)
  1. CLARITIN-D 24 HOUR [Suspect]
     Dosage: QD; PO
     Route: 048

REACTIONS (5)
  - ABNORMAL DREAMS [None]
  - BIPOLAR DISORDER [None]
  - CONDITION AGGRAVATED [None]
  - FEELING ABNORMAL [None]
  - FEELING JITTERY [None]
